FAERS Safety Report 8160914 (Version 7)
Quarter: 2014Q2

REPORT INFORMATION
  Report Type: Spontaneous
  Country: US (occurrence: US)
  Receive Date: 20110928
  Receipt Date: 20140508
  Transmission Date: 20141212
  Serious: Yes (Disabling)
  Sender: FDA-Public Use
  Company Number: US-MERCK-1104USA02993

PATIENT
  Sex: Male
  Weight: 92.53 kg

DRUGS (2)
  1. PROPECIA [Suspect]
     Indication: ALOPECIA
     Dosage: 1 MG, QD
     Route: 048
     Dates: start: 20090129
  2. PROPECIA [Suspect]
     Indication: ALOPECIA

REACTIONS (17)
  - Emotional distress [Unknown]
  - Anxiety [Unknown]
  - Sexual dysfunction [Unknown]
  - Blood testosterone decreased [Unknown]
  - Amnesia [Unknown]
  - Asthenia [Unknown]
  - Epididymitis [Unknown]
  - Orchitis [Unknown]
  - Hypogonadism [Unknown]
  - Fatigue [Unknown]
  - Asthenia [Unknown]
  - Depression [Unknown]
  - Libido decreased [Unknown]
  - Libido decreased [Unknown]
  - Erectile dysfunction [Unknown]
  - Arthropod bite [Unknown]
  - Disturbance in attention [Unknown]
